FAERS Safety Report 18695608 (Version 1)
Quarter: 2021Q1

REPORT INFORMATION
  Report Type: Spontaneous
  Country: US (occurrence: US)
  Receive Date: 20210104
  Receipt Date: 20210104
  Transmission Date: 20210419
  Serious: Yes (Hospitalization, Other)
  Sender: FDA-Public Use
  Company Number: None

PATIENT
  Age: 92 Year
  Sex: Female
  Weight: 99.7 kg

DRUGS (4)
  1. MEROPENEM. [Concomitant]
     Active Substance: MEROPENEM
     Dates: start: 20201223, end: 20201229
  2. METHYLPREDNISOLONE. [Concomitant]
     Active Substance: METHYLPREDNISOLONE
     Dates: start: 20201217, end: 20201230
  3. BARICITINIB. [Suspect]
     Active Substance: BARICITINIB
     Indication: COVID-19
     Route: 048
     Dates: start: 20201218, end: 20201228
  4. REMDESIVIR. [Concomitant]
     Active Substance: REMDESIVIR
     Dates: start: 20201216, end: 20201220

REACTIONS (7)
  - Aerococcus urinae infection [None]
  - Leukocytosis [None]
  - Escherichia test positive [None]
  - Retroperitoneal haematoma [None]
  - Drug intolerance [None]
  - Klebsiella test positive [None]
  - White blood cells urine positive [None]

NARRATIVE: CASE EVENT DATE: 20201228
